FAERS Safety Report 7576576 (Version 2)
Quarter: 2020Q3

REPORT INFORMATION
  Report Type: Report from Study
  Country: US (occurrence: US)
  Receive Date: 20100908
  Receipt Date: 20110428
  Transmission Date: 20201104
  Serious: Yes (Hospitalization)
  Sender: FDA-Public Use
  Company Number: US-JNJFOC-20100302322

PATIENT
  Age: 71 Year
  Sex: Female
  Weight: 102 kg

DRUGS (18)
  1. TAPENTADOL [Suspect]
     Active Substance: TAPENTADOL
     Route: 048
  2. ROBAXIN [Concomitant]
     Active Substance: METHOCARBAMOL
     Route: 065
  3. TAPENTADOL [Suspect]
     Active Substance: TAPENTADOL
     Route: 048
  4. METANX [Concomitant]
     Indication: NUTRITIONAL SUPPLEMENTATION
     Dosage: TWICE DAILY
     Route: 048
  5. NOVOLOG [Concomitant]
     Active Substance: INSULIN ASPART
     Indication: DIABETES MELLITUS
     Dosage: EVERY DAY
     Route: 058
  6. LIPITOR [Concomitant]
     Active Substance: ATORVASTATIN CALCIUM
     Indication: HYPERCHOLESTEROLAEMIA
     Dosage: EVERY DAY
     Route: 048
  7. MULTIVITAMINES [Concomitant]
     Indication: NUTRITIONAL SUPPLEMENTATION
     Dosage: EVERY DAY
     Route: 048
  8. LASIX [Concomitant]
     Active Substance: FUROSEMIDE
     Indication: OEDEMA
     Dosage: EVERY DAY
     Route: 048
  9. ALLEGRA [Concomitant]
     Active Substance: FEXOFENADINE HYDROCHLORIDE
     Route: 065
  10. TAPENTADOL [Suspect]
     Active Substance: TAPENTADOL
     Indication: DIABETIC NEUROPATHY
     Route: 048
  11. PLACEBO [Suspect]
     Active Substance: UNSPECIFIED INGREDIENT
     Indication: DIABETIC NEUROPATHY
     Route: 048
  12. TAPENTADOL [Suspect]
     Active Substance: TAPENTADOL
     Route: 048
  13. NPH INSULIN [Concomitant]
     Active Substance: INSULIN BEEF
     Indication: DIABETES MELLITUS
     Dosage: TWICE DAILY
     Route: 058
  14. PLAVIX [Concomitant]
     Active Substance: CLOPIDOGREL BISULFATE
     Indication: CARDIOVASCULAR EVENT PROPHYLAXIS
     Dosage: EVERY DAY
     Route: 048
  15. NEXIUM [Concomitant]
     Active Substance: ESOMEPRAZOLE MAGNESIUM
     Indication: GASTROOESOPHAGEAL REFLUX DISEASE
     Dosage: EVERY DAY
  16. GLUCOTROL [Concomitant]
     Active Substance: GLIPIZIDE
     Indication: DIABETES MELLITUS
     Dosage: EVERY DAY
     Route: 048
  17. GLUCOPHAGE [Concomitant]
     Active Substance: METFORMIN HYDROCHLORIDE
     Indication: DIABETES MELLITUS
     Dosage: EVERY DAY
     Route: 048
  18. ATENOLOL. [Concomitant]
     Active Substance: ATENOLOL
     Indication: HYPERTENSION
     Dosage: EVERY DAY
     Route: 048

REACTIONS (3)
  - Dehydration [Recovered/Resolved]
  - Presyncope [Recovered/Resolved]
  - Chest pain [Recovered/Resolved]

NARRATIVE: CASE EVENT DATE: 20100301
